FAERS Safety Report 5508883-9 (Version None)
Quarter: 2007Q4

REPORT INFORMATION
  Report Type: 
  Country: None (occurrence: None)
  Receive Date: 20071026
  Receipt Date: 20060927
  Transmission Date: 20080405
  Serious: Yes (Hospitalization)
  Sender: FDA-Public Use
  Company Number: SP00989

PATIENT
  Age: 55 Year
  Sex: Female

DRUGS (10)
  1. VISICOL [Suspect]
     Indication: COLONOSCOPY
     Dosage: ORAL
     Route: 048
     Dates: start: 20060612, end: 20060613
  2. ASPIRIN [Concomitant]
  3. PLAVIX [Concomitant]
  4. BENICAR [Concomitant]
  5. PROZAC [Concomitant]
  6. CELEBREX [Concomitant]
  7. WELLBUTRIN [Concomitant]
  8. TOPROL-XL [Concomitant]
  9. CRESTOR [Concomitant]
  10. TRAZODONE HCL [Concomitant]

REACTIONS (2)
  - NEPHROCALCINOSIS [None]
  - RENAL FAILURE ACUTE [None]
